FAERS Safety Report 5615533-X (Version None)
Quarter: 2008Q1

REPORT INFORMATION
  Report Type: 
  Country: None (occurrence: None)
  Receive Date: 20080206
  Receipt Date: 20080129
  Transmission Date: 20080703
  Serious: Yes (Other)
  Sender: FDA-Public Use
  Company Number: JP-BRISTOL-MYERS SQUIBB COMPANY-14058655

PATIENT

DRUGS (1)
  1. ABILIFY [Suspect]
     Route: 048
     Dates: start: 20070101

REACTIONS (1)
  - ANAEMIA [None]
